FAERS Safety Report 5255095-2 (Version None)
Quarter: 2007Q1

REPORT INFORMATION
  Report Type: 
  Country: None (occurrence: None)
  Receive Date: 20070305
  Receipt Date: 20070228
  Transmission Date: 20070707
  Serious: Yes (Death, Life-Threatening, Hospitalization, Other)
  Sender: FDA-Public Use
  Company Number: DE-AVENTIS-200710257DE

PATIENT
  Age: 81 Year
  Sex: Female
  Weight: 62 kg

DRUGS (3)
  1. CLEXANE [Suspect]
     Route: 058
     Dates: start: 20070124, end: 20070124
  2. CLEXANE [Suspect]
     Route: 058
     Dates: start: 20070124, end: 20070124
  3. CLEXANE [Suspect]
     Route: 058
     Dates: start: 20070124, end: 20070124

REACTIONS (3)
  - DISSEMINATED INTRAVASCULAR COAGULATION [None]
  - HAEMORRHAGE [None]
  - MULTI-ORGAN FAILURE [None]
